FAERS Safety Report 15905838 (Version 1)
Quarter: 2019Q1

REPORT INFORMATION
  Report Type: Spontaneous
  Country: IE (occurrence: IE)
  Receive Date: 20190204
  Receipt Date: 20190204
  Transmission Date: 20190417
  Serious: Yes (Disabling, Other)
  Sender: FDA-Public Use
  Company Number: IE-JNJFOC-20190134027

PATIENT
  Age: 41 Year
  Sex: Female
  Weight: 67.19 kg

DRUGS (2)
  1. SPORANOX [Suspect]
     Active Substance: ITRACONAZOLE
     Indication: ONYCHOMYCOSIS
     Dosage: TWO CAPSULES THREE TIMES PER DAY FOR 7 DAYS, 1 WEEK OFF. 2 CAPSULES THREE TIMES PER DAY FOR 7 DAYS
     Route: 048
     Dates: end: 20181015
  2. SPORANOX [Suspect]
     Active Substance: ITRACONAZOLE
     Indication: ONYCHOMYCOSIS
     Route: 048
     Dates: start: 20180926, end: 20181015

REACTIONS (4)
  - Off label use [Unknown]
  - Inappropriate schedule of product administration [Unknown]
  - Fatigue [Not Recovered/Not Resolved]
  - Muscular weakness [Not Recovered/Not Resolved]
